FAERS Safety Report 17673698 (Version 2)
Quarter: 2021Q4

REPORT INFORMATION
  Report Type: Spontaneous
  Country: CA (occurrence: CA)
  Receive Date: 20200416
  Receipt Date: 20211006
  Transmission Date: 20220303
  Serious: Yes (Hospitalization)
  Sender: FDA-Public Use
  Company Number: CA-ROCHE-2581912

PATIENT
  Age: 43 Year
  Sex: Female

DRUGS (3)
  1. CLONAZEPAM [Suspect]
     Active Substance: CLONAZEPAM
     Indication: Anxiety
     Dosage: 1 EVERY 1 DAYS
     Route: 048
  2. OMALIZUMAB [Suspect]
     Active Substance: OMALIZUMAB
     Indication: Chronic spontaneous urticaria
     Dosage: 1 EVERY 4 WEEKS
     Route: 058
  3. OMALIZUMAB [Suspect]
     Active Substance: OMALIZUMAB
     Dosage: 1 EVERY 4 WEEKS
     Route: 058

REACTIONS (8)
  - Cardiac infection [Unknown]
  - Dyspnoea [Unknown]
  - Malaise [Unknown]
  - Middle insomnia [Unknown]
  - Night sweats [Unknown]
  - Pneumonia [Unknown]
  - Pruritus [Unknown]
  - Urticaria [Unknown]
